FAERS Safety Report 17874701 (Version 1)
Quarter: 2020Q2

REPORT INFORMATION
  Report Type: Spontaneous
  Country: PL (occurrence: PL)
  Receive Date: 20200609
  Receipt Date: 20200609
  Transmission Date: 20200714
  Serious: Yes (Hospitalization, Other)
  Sender: FDA-Public Use
  Company Number: PL-MYLANLABS-2020M1054204

PATIENT
  Sex: Male
  Weight: 100 kg

DRUGS (1)
  1. MIRTAGEN [Suspect]
     Active Substance: MIRTAZAPINE
     Indication: PRODUCT USED FOR UNKNOWN INDICATION
     Dosage: INGESTED 50 TABLETS
     Route: 048
     Dates: start: 20200524, end: 20200524

REACTIONS (2)
  - Suicide attempt [Unknown]
  - Extra dose administered [Unknown]

NARRATIVE: CASE EVENT DATE: 20200524
